FAERS Safety Report 8006492-3 (Version None)
Quarter: 2011Q4

REPORT INFORMATION
  Report Type: 
  Country: None (occurrence: None)
  Receive Date: 20111226
  Receipt Date: 20111214
  Transmission Date: 20120403
  Serious: Yes (Other)
  Sender: FDA-Public Use
  Company Number: PHHY2011IL109329

PATIENT
  Sex: Female

DRUGS (3)
  1. ACE INHIBITORS [Suspect]
     Indication: PROTEINURIA
     Dosage: UNK UKN, UNK
  2. CORTICOSTEROIDS [Suspect]
     Indication: PROTEINURIA
     Dosage: UNK UKN, UNK
  3. CYCLOSPORINE [Suspect]
     Indication: FOCAL SEGMENTAL GLOMERULOSCLEROSIS
     Dosage: UNK UKN, UNK

REACTIONS (3)
  - RENAL IMPAIRMENT [None]
  - RENAL FAILURE CHRONIC [None]
  - PROTEINURIA [None]
